FAERS Safety Report 12995459 (Version 1)
Quarter: 2016Q4

REPORT INFORMATION
  Report Type: Spontaneous
  Country: RO (occurrence: RO)
  Receive Date: 20161202
  Receipt Date: 20161202
  Transmission Date: 20170207
  Serious: Yes (Other)
  Sender: FDA-Public Use
  Company Number: RO-JNJFOC-20161127030

PATIENT

DRUGS (4)
  1. DOXORUBICIN [Suspect]
     Active Substance: DOXORUBICIN
     Indication: OSTEOSARCOMA
     Route: 065
  2. IFOSFAMIDE. [Suspect]
     Active Substance: IFOSFAMIDE
     Indication: OSTEOSARCOMA
     Route: 065
  3. METHOTREXATE. [Suspect]
     Active Substance: METHOTREXATE
     Indication: OSTEOSARCOMA
     Route: 065
  4. CISPLATIN. [Suspect]
     Active Substance: CISPLATIN
     Indication: OSTEOSARCOMA
     Route: 065

REACTIONS (12)
  - Sepsis [Unknown]
  - Pneumonia [Unknown]
  - Haemorrhage [Unknown]
  - Urinary tract infection [Unknown]
  - Bone marrow failure [Unknown]
  - Dermatitis [Unknown]
  - Pancreatitis [Unknown]
  - Pharyngotonsillitis [Unknown]
  - Hepatitis [Unknown]
  - Mucosal inflammation [Unknown]
  - Product use issue [Unknown]
  - Off label use [Unknown]
